FAERS Safety Report 17693549 (Version 1)
Quarter: 2020Q2

REPORT INFORMATION
  Report Type: Spontaneous
  Country: CN (occurrence: CN)
  Receive Date: 20200422
  Receipt Date: 20200422
  Transmission Date: 20200714
  Serious: Yes (Hospitalization)
  Sender: FDA-Public Use
  Company Number: CN-JNJFOC-20200421689

PATIENT
  Age: 1 Year
  Sex: Female

DRUGS (6)
  1. IRON DEXTRAN [Concomitant]
     Active Substance: IRON DEXTRAN
     Indication: ANAEMIA
     Route: 048
     Dates: start: 20200407, end: 20200414
  2. CEFTRIAXONE SODIUM. [Suspect]
     Active Substance: CEFTRIAXONE SODIUM
     Indication: INFECTION
     Route: 041
     Dates: start: 20200411, end: 20200411
  3. COMPOUND GLYCYRRHIZIN              /00518801/ [Concomitant]
     Active Substance: CYSTEINE\GLYCINE\GLYCYRRHIZIN
     Indication: HEPATIC CIRRHOSIS
     Route: 048
     Dates: start: 20200407, end: 20200414
  4. VITAMIN A AND D [Concomitant]
     Active Substance: LANOLIN\PETROLATUM
     Indication: HYPOVITAMINOSIS
     Route: 048
     Dates: start: 20200407, end: 20200414
  5. GLUCUROLACTONE [Concomitant]
     Active Substance: GLUCUROLACTONE
     Indication: HEPATIC CIRRHOSIS
     Route: 048
     Dates: start: 20200407, end: 20200414
  6. MOTRIN INFANTS [Suspect]
     Active Substance: IBUPROFEN
     Indication: PYREXIA
     Dosage: 1.875 ML ONCE
     Route: 048
     Dates: start: 20200411, end: 20200411

REACTIONS (3)
  - White blood cell count decreased [Unknown]
  - Platelet count decreased [Unknown]
  - Red blood cell count decreased [Unknown]

NARRATIVE: CASE EVENT DATE: 20200412
